FAERS Safety Report 13092331 (Version 1)
Quarter: 2017Q1

REPORT INFORMATION
  Report Type: Spontaneous
  Country: US (occurrence: US)
  Receive Date: 20170106
  Receipt Date: 20170106
  Transmission Date: 20170428
  Serious: No
  Sender: FDA-Public Use
  Company Number: US-DRREDDYS-USA/USA/16/0084329

PATIENT
  Age: 57 Year
  Sex: Female
  Weight: 85.72 kg

DRUGS (2)
  1. HABITROL [Suspect]
     Active Substance: NICOTINE
     Route: 061
  2. HABITROL [Suspect]
     Active Substance: NICOTINE
     Indication: SMOKING CESSATION THERAPY
     Route: 061

REACTIONS (4)
  - Hypersensitivity [Recovered/Resolved]
  - Application site rash [Recovered/Resolved]
  - Rash papular [Recovered/Resolved]
  - Rash pruritic [Recovered/Resolved]
